FAERS Safety Report 15787017 (Version 2)
Quarter: 2020Q2

REPORT INFORMATION
  Report Type: Report from Study
  Country: AU (occurrence: AU)
  Receive Date: 20190103
  Receipt Date: 20200520
  Transmission Date: 20200713
  Serious: Yes (Other)
  Sender: FDA-Public Use
  Company Number: AU-PFIZER INC-2018533311

PATIENT
  Sex: Male

DRUGS (4)
  1. LEUPRORELIN ACETATE [Suspect]
     Active Substance: LEUPROLIDE ACETATE
     Indication: ANTIANDROGEN THERAPY
     Dosage: 22.5 MG, EVERY 3 MONTHS (ITAS PLUS ZOLEDRONIC ACID GROUP)
     Route: 030
  2. LEUPRORELIN ACETATE [Suspect]
     Active Substance: LEUPROLIDE ACETATE
     Indication: PROSTATE CANCER
  3. ZOLEDRONIC ACID [Suspect]
     Active Substance: ZOLEDRONIC ACID
     Indication: ANTIANDROGEN THERAPY
  4. ZOLEDRONIC ACID [Suspect]
     Active Substance: ZOLEDRONIC ACID
     Indication: PROSTATE CANCER
     Dosage: 4 MG, EVERY 3 MONTHS (ITAS PLUS ZOLEDRONIC ACID GROUP)
     Route: 042

REACTIONS (2)
  - Peripheral ischaemia [Unknown]
  - Syncope [Unknown]
